FAERS Safety Report 7288373-6 (Version None)
Quarter: 2011Q1

REPORT INFORMATION
  Report Type: 
  Country: None (occurrence: None)
  Receive Date: 20110211
  Receipt Date: 20110206
  Transmission Date: 20110831
  Serious: Yes (Other)
  Sender: FDA-Public Use
  Company Number: SA-ROCHE-757659

PATIENT
  Age: 12 Year
  Sex: Female
  Weight: 25 kg

DRUGS (3)
  1. ACTEMRA [Suspect]
     Route: 042
     Dates: start: 20101215, end: 20110123
  2. METHOTREXATE [Concomitant]
     Indication: ARTHRITIS
     Route: 048
     Dates: start: 20100801
  3. PREDNISOLONE [Concomitant]
     Indication: ARTHRITIS
     Route: 048
     Dates: start: 20100801

REACTIONS (3)
  - HYPERTENSION [None]
  - ANAPHYLACTOID REACTION [None]
  - PAIN [None]
